FAERS Safety Report 23014789 (Version 1)
Quarter: 2023Q4

REPORT INFORMATION
  Report Type: Spontaneous
  Country: BR (occurrence: BR)
  Receive Date: 20231002
  Receipt Date: 20231002
  Transmission Date: 20240109
  Serious: Yes (Other)
  Sender: FDA-Public Use
  Company Number: BR-ELI_LILLY_AND_COMPANY-BR202308000849

PATIENT
  Sex: Male

DRUGS (2)
  1. CYMBALTA [Suspect]
     Active Substance: DULOXETINE HYDROCHLORIDE
     Indication: Product used for unknown indication
     Dosage: UNK UNK, UNKNOWN
     Route: 065
  2. CYMBALTA [Suspect]
     Active Substance: DULOXETINE HYDROCHLORIDE
     Indication: Product used for unknown indication
     Dosage: UNK UNK, UNKNOWN
     Route: 065

REACTIONS (12)
  - Suicide attempt [Unknown]
  - Rhinitis [Unknown]
  - Dysphonia [Unknown]
  - Bipolar disorder [Unknown]
  - Pyrexia [Unknown]
  - Migraine [Unknown]
  - COVID-19 [Unknown]
  - Vertigo [Unknown]
  - Headache [Unknown]
  - Epistaxis [Unknown]
  - Pain [Unknown]
  - Suicide attempt [Unknown]

NARRATIVE: CASE EVENT DATE: 20230728
